FAERS Safety Report 5205231-9 (Version None)
Quarter: 2007Q1

REPORT INFORMATION
  Report Type: 
  Country: None (occurrence: None)
  Receive Date: 20070110
  Receipt Date: 20070102
  Transmission Date: 20070707
  Serious: Yes (Life-Threatening, Hospitalization, Other)
  Sender: FDA-Public Use
  Company Number: ES-PFIZER INC-2006155024

PATIENT
  Age: 47 Year
  Sex: Male

DRUGS (20)
  1. NIFEDIPINE [Suspect]
     Indication: HYPERTENSION
     Dates: start: 20050101, end: 20050101
  2. NIFEDIPINE [Interacting]
     Dosage: DAILY DOSE:60MG
     Dates: start: 20050501, end: 20050501
  3. NIFEDIPINE [Interacting]
     Dosage: DAILY DOSE:60MG
  4. KALETRA [Interacting]
     Indication: ACQUIRED IMMUNODEFICIENCY SYNDROME
  5. KALETRA [Interacting]
     Dates: start: 20050101, end: 20050101
  6. KALETRA [Interacting]
     Dates: start: 20050501, end: 20050501
  7. KALETRA [Interacting]
     Dates: start: 20020101, end: 20050301
  8. LAMIVUDINE [Concomitant]
     Indication: ACQUIRED IMMUNODEFICIENCY SYNDROME
  9. LAMIVUDINE [Concomitant]
     Dates: start: 20050501, end: 20050501
  10. LAMIVUDINE [Concomitant]
     Dates: start: 20020101, end: 20050301
  11. D4T [Concomitant]
     Indication: ACQUIRED IMMUNODEFICIENCY SYNDROME
     Dates: start: 20050101
  12. D4T [Concomitant]
     Dates: start: 20050501, end: 20050501
  13. D4T [Concomitant]
     Dates: start: 20020101, end: 20050301
  14. DOXAZOSIN MESYLATE [Concomitant]
     Indication: HYPERTENSION
     Route: 048
     Dates: start: 20050501, end: 20050501
  15. DOXAZOSIN MESYLATE [Concomitant]
     Dates: end: 20050301
  16. FUROSEMIDE [Concomitant]
     Indication: HYPERTENSION
     Dates: start: 20050501, end: 20050501
  17. FUROSEMIDE [Concomitant]
     Dates: end: 20050301
  18. ENALAPRIL MALEATE [Concomitant]
     Indication: HYPERTENSION
     Dates: start: 20050101, end: 20050101
  19. LOSARTAN POTASSIUM [Concomitant]
     Indication: HYPERTENSION
     Dates: start: 20050101, end: 20050101
  20. AMLODIPINE [Concomitant]
     Indication: HYPERTENSION
     Dates: start: 20050101

REACTIONS (7)
  - BLOOD CREATININE INCREASED [None]
  - DRUG INTERACTION [None]
  - FLUID RETENTION [None]
  - HYPOTENSION [None]
  - MALAISE [None]
  - RENAL FAILURE [None]
  - URINE OUTPUT DECREASED [None]
